FAERS Safety Report 10273376 (Version 2)
Quarter: 2014Q3

REPORT INFORMATION
  Report Type: Spontaneous
  Country: ZA (occurrence: ZA)
  Receive Date: 20140702
  Receipt Date: 20140702
  Transmission Date: 20150326
  Serious: Yes (Death)
  Sender: FDA-Public Use
  Company Number: ZA-PFIZER INC-9906770

PATIENT
  Age: 63 Year
  Sex: Male
  Weight: 90 kg

DRUGS (7)
  1. SALMETEROL [Concomitant]
     Active Substance: SALMETEROL
     Route: 055
  2. ANHYDROUS THEOPHYLLINE [Concomitant]
     Route: 048
     Dates: start: 19980424, end: 19980430
  3. QUINAPRIL [Concomitant]
     Active Substance: QUINAPRIL\QUINAPRIL HYDROCHLORIDE
     Route: 048
  4. AZITHROMYCIN [Suspect]
     Active Substance: AZITHROMYCIN ANHYDROUS
     Indication: LOWER RESPIRATORY TRACT INFECTION
     Dosage: DAILY
     Route: 048
     Dates: start: 19980424, end: 19980426
  5. FLUTICASONE PROPIONATE. [Concomitant]
     Active Substance: FLUTICASONE PROPIONATE
     Route: 055
  6. PREDNISONE. [Concomitant]
     Active Substance: PREDNISONE
     Dates: start: 19980424
  7. METHYLTESTOSTERONE [Concomitant]
     Active Substance: METHYLTESTOSTERONE
     Route: 048

REACTIONS (6)
  - Cardiac failure [Unknown]
  - Atrial fibrillation [Unknown]
  - Cardiac arrest [Fatal]
  - Hepatic necrosis [Unknown]
  - Abdominal pain [Unknown]
  - Nausea [Unknown]

NARRATIVE: CASE EVENT DATE: 19980504
